FAERS Safety Report 9643119 (Version 2)
Quarter: 2013Q4

REPORT INFORMATION
  Report Type: Spontaneous
  Country: US (occurrence: US)
  Receive Date: 20131024
  Receipt Date: 20131028
  Transmission Date: 20140711
  Serious: No
  Sender: FDA-Public Use
  Company Number: US-VERTEX PHARMACEUTICALS INC-2013-010593

PATIENT
  Age: 57 Year
  Sex: Male
  Weight: 57.6 kg

DRUGS (3)
  1. INCIVEK [Suspect]
     Indication: HEPATITIS C
     Dosage: 2 DF, TID
     Route: 048
     Dates: start: 20131004, end: 20131019
  2. PEGASYS [Suspect]
     Indication: HEPATITIS C
     Dosage: UNK
     Dates: start: 20131004, end: 20131019
  3. RIBAVIRIN [Suspect]
     Indication: HEPATITIS C
     Dosage: UNK
     Dates: start: 20131004, end: 20131019

REACTIONS (9)
  - Chills [Unknown]
  - Oral mucosal blistering [Unknown]
  - Headache [Unknown]
  - Pyrexia [Unknown]
  - Decreased appetite [Unknown]
  - Weight decreased [Unknown]
  - Asthenia [Unknown]
  - Rash [Unknown]
  - Vomiting [Unknown]
